FAERS Safety Report 14672208 (Version 1)
Quarter: 2018Q1

REPORT INFORMATION
  Report Type: Spontaneous
  Country: US (occurrence: US)
  Receive Date: 20180323
  Receipt Date: 20180323
  Transmission Date: 20180509
  Serious: Yes (Other)
  Sender: FDA-Public Use
  Company Number: US-ASTRAZENECA-2018SE34494

PATIENT
  Age: 962 Month
  Sex: Female
  Weight: 77.1 kg

DRUGS (2)
  1. BYDUREON BCISE [Suspect]
     Active Substance: EXENATIDE
     Indication: TYPE 2 DIABETES MELLITUS
     Route: 058
     Dates: start: 201802
  2. BYETTA [Suspect]
     Active Substance: EXENATIDE
     Indication: TYPE 2 DIABETES MELLITUS
     Route: 058
     Dates: end: 201802

REACTIONS (7)
  - Injection site pain [Recovering/Resolving]
  - Injection site extravasation [Not Recovered/Not Resolved]
  - Injection site bruising [Recovering/Resolving]
  - Injection site mass [Recovering/Resolving]
  - Insurance issue [Unknown]
  - Retinal detachment [Recovered/Resolved]
  - Body height decreased [Unknown]

NARRATIVE: CASE EVENT DATE: 201802
